FAERS Safety Report 4881335-5 (Version None)
Quarter: 2005Q4

REPORT INFORMATION
  Report Type: 
  Country: None (occurrence: None)
  Receive Date: 20051212
  Receipt Date: 20051014
  Transmission Date: 20060501
  Serious: No
  Sender: FDA-Public Use
  Company Number: 2005-02135

PATIENT
  Age: 74 Year
  Sex: Female
  Weight: 102 kg

DRUGS (9)
  1. VELCADE [Suspect]
     Indication: MULTIPLE MYELOMA
     Dosage: INTRAVENOUS
     Route: 042
     Dates: start: 20050621, end: 20050930
  2. VITAMINS [Concomitant]
  3. PREMARIN [Concomitant]
  4. SYNTHROID [Concomitant]
  5. ZOLOFT [Concomitant]
  6. ELAVIL (AMITRIPTYLIINE HYDROCHLORIDE) [Concomitant]
  7. AREDIA [Concomitant]
  8. PROCRIT [Concomitant]
  9. ANTIEMETICS AND ANTINAUSEANTS [Concomitant]

REACTIONS (2)
  - NEUROPATHY PERIPHERAL [None]
  - PAIN IN EXTREMITY [None]
